FAERS Safety Report 7000330-3 (Version None)
Quarter: 2010Q3

REPORT INFORMATION
  Report Type: 
  Country: None (occurrence: None)
  Receive Date: 20100920
  Receipt Date: 20100910
  Transmission Date: 20110219
  Serious: Yes (Other)
  Sender: FDA-Public Use
  Company Number: AU-JNJFOC-20100904837

PATIENT
  Age: 81 Year
  Sex: Female

DRUGS (4)
  1. DURAGESIC-100 [Suspect]
     Indication: PRODUCT USED FOR UNKNOWN INDICATION
     Dosage: DURAGESIC 20
     Route: 062
  2. DURAGESIC-100 [Suspect]
     Dosage: DURAGESIC 10
     Route: 062
  3. DURAGESIC-100 [Suspect]
     Dosage: DURAGESIC 5
     Route: 062
  4. DURAGESIC-100 [Suspect]
     Dosage: DURAGESIC 2.1
     Route: 062

REACTIONS (11)
  - ABNORMAL BEHAVIOUR [None]
  - ACTIVITIES OF DAILY LIVING IMPAIRED [None]
  - ARTHRITIS [None]
  - CYSTITIS [None]
  - DIARRHOEA [None]
  - HEADACHE [None]
  - KIDNEY INFECTION [None]
  - MALAISE [None]
  - PAIN [None]
  - TREMOR [None]
  - VOMITING [None]
